FAERS Safety Report 6691405-7 (Version None)
Quarter: 2010Q2

REPORT INFORMATION
  Report Type: 
  Country: None (occurrence: None)
  Receive Date: 20100414
  Receipt Date: 20091215
  Transmission Date: 20101027
  Serious: Yes (Other)
  Sender: FDA-Public Use
  Company Number: 09-532

PATIENT
  Age: 80 Year
  Sex: Female

DRUGS (4)
  1. ALEVE [Suspect]
     Indication: ARTHRITIS
     Dosage: 440MG, DAILY, ORAL; 440MG, DAILY, ORAL
     Route: 048
     Dates: end: 20070101
  2. ACETAMINOPHEN [Concomitant]
  3. LIPITOR [Concomitant]
  4. HYZAAR [Concomitant]

REACTIONS (2)
  - BACK PAIN [None]
  - GASTRIC ULCER [None]
